FAERS Safety Report 8271289-6 (Version None)
Quarter: 2012Q2

REPORT INFORMATION
  Report Type: 
  Country: None (occurrence: None)
  Receive Date: 20120406
  Receipt Date: 20120326
  Transmission Date: 20120825
  Serious: Yes (Life-Threatening)
  Sender: FDA-Public Use
  Company Number: DSM-2012-00372

PATIENT
  Age: 74 Year
  Sex: Female

DRUGS (6)
  1. OLMESARTAN MEDOXOMIL [Suspect]
     Indication: PRODUCT USED FOR UNKNOWN INDICATION
     Dosage: ORAL
     Route: 048
     Dates: start: 20040501
  2. CLOPIDOGREL [Concomitant]
  3. ADCAL (CALCIUM CARBONATE) (CALCIUM CARBONATE) [Concomitant]
  4. OMEPRAZOLE [Concomitant]
  5. LEVOTHYROXINE SODIUM [Concomitant]
  6. SIMVASTATIN [Concomitant]

REACTIONS (1)
  - BASAL CELL CARCINOMA [None]
